FAERS Safety Report 23221178 (Version 2)
Quarter: 2023Q4

REPORT INFORMATION
  Report Type: Report from Study
  Country: IN (occurrence: IN)
  Receive Date: 20231123
  Receipt Date: 20231210
  Transmission Date: 20240110
  Serious: Yes (Other)
  Sender: FDA-Public Use
  Company Number: IN-002147023-NVSC2023IN248823

PATIENT
  Sex: Male
  Weight: 95 kg

DRUGS (4)
  1. TASIGNA [Suspect]
     Active Substance: NILOTINIB
     Indication: Chronic myeloid leukaemia
     Dosage: 200 MG, BID (1-0-1, 3 WEEKS)
     Route: 048
     Dates: start: 20200211
  2. CIPROFLOXACIN\TINIDAZOLE [Concomitant]
     Active Substance: CIPROFLOXACIN\TINIDAZOLE
     Indication: Product used for unknown indication
     Dosage: UNK, BID (1-0-1, 10 DAYS)
     Route: 065
  3. ZERODOL-P [Concomitant]
     Indication: Product used for unknown indication
     Dosage: UNK, UNKNOWN
     Route: 065
  4. PYRIGESIC [Concomitant]
     Indication: Product used for unknown indication
     Dosage: UNK, UNKNOWN
     Route: 065

REACTIONS (4)
  - Body mass index increased [Unknown]
  - Respiratory rate increased [Unknown]
  - White blood cell count increased [Unknown]
  - Blood pressure increased [Unknown]
